FAERS Safety Report 7504091-0 (Version None)
Quarter: 2011Q2

REPORT INFORMATION
  Report Type: 
  Country: None (occurrence: None)
  Receive Date: 20110525
  Receipt Date: 20110516
  Transmission Date: 20111010
  Serious: Yes (Hospitalization, Disabling, Other)
  Sender: FDA-Public Use
  Company Number: US-ABBOTT-08P-163-0463686-00

PATIENT
  Sex: Female
  Weight: 54.48 kg

DRUGS (19)
  1. CYMBALTA [Concomitant]
  2. HUMIRA [Suspect]
     Route: 058
  3. TYLENOL PM [Concomitant]
     Indication: PRODUCT USED FOR UNKNOWN INDICATION
     Route: 048
  4. HUMIRA [Suspect]
     Route: 058
     Dates: end: 20080501
  5. LYRICA [Concomitant]
     Indication: PRODUCT USED FOR UNKNOWN INDICATION
  6. LYRICA [Concomitant]
     Dosage: 600MG DAILY
  7. IMURAN [Concomitant]
     Indication: PRODUCT USED FOR UNKNOWN INDICATION
     Dosage: 2.5 TABLETS DAILY
  8. HUMIRA [Suspect]
     Indication: CROHN'S DISEASE
     Route: 058
     Dates: start: 20080415, end: 20080415
  9. VITAMIN B-12 [Concomitant]
     Indication: HYPOVITAMINOSIS
  10. AZATHIOPRINE [Concomitant]
     Indication: PRODUCT USED FOR UNKNOWN INDICATION
  11. ULTRAM [Concomitant]
     Indication: PRODUCT USED FOR UNKNOWN INDICATION
     Dosage: 1/2-2 TABS QID FOR 10 DAYS
     Route: 048
  12. HUMIRA [Suspect]
     Dates: end: 20080703
  13. GABAPENTIN [Concomitant]
     Indication: PRODUCT USED FOR UNKNOWN INDICATION
     Route: 048
  14. LYRICA [Concomitant]
     Dosage: 300MG DAILY
  15. CYMBALTA [Concomitant]
     Indication: NEUROPATHY PERIPHERAL
     Dosage: 60MG(2) IN AM
  16. NEURONTIN [Concomitant]
     Indication: NEUROPATHY PERIPHERAL
     Dosage: INCREASED TO 300MG ,600MG EVEN 900TID
     Route: 048
  17. CYMBALTA [Concomitant]
  18. ACIDOPHILUS [Concomitant]
     Indication: PRODUCT USED FOR UNKNOWN INDICATION
     Route: 048
  19. MULTI-VITAMIN [Concomitant]
     Indication: PRODUCT USED FOR UNKNOWN INDICATION
     Route: 048

REACTIONS (11)
  - TEMPERATURE INTOLERANCE [None]
  - HEADACHE [None]
  - MELANOCYTIC NAEVUS [None]
  - CROHN'S DISEASE [None]
  - PARAESTHESIA [None]
  - HYPERAESTHESIA [None]
  - NEUROPATHY PERIPHERAL [None]
  - COUGH [None]
  - ABDOMINAL PAIN [None]
  - PAIN IN EXTREMITY [None]
  - PAIN THRESHOLD DECREASED [None]
